FAERS Safety Report 22328582 (Version 2)
Quarter: 2024Q2

REPORT INFORMATION
  Report Type: Spontaneous
  Country: US (occurrence: US)
  Receive Date: 20230517
  Receipt Date: 20240531
  Transmission Date: 20240716
  Serious: No
  Sender: FDA-Public Use
  Company Number: US-RADIUS HEALTH INC.-2022US005634

PATIENT
  Sex: Female

DRUGS (1)
  1. TYMLOS [Suspect]
     Active Substance: ABALOPARATIDE
     Indication: Senile osteoporosis
     Dosage: 80 MICROGRAM, QD
     Route: 058
     Dates: start: 202210

REACTIONS (8)
  - Sensory disturbance [Unknown]
  - Initial insomnia [Unknown]
  - Nausea [Unknown]
  - Headache [Unknown]
  - Palpitations [Unknown]
  - Dizziness [Unknown]
  - Vertigo [Unknown]
  - Heart rate increased [Unknown]
